FAERS Safety Report 14667517 (Version 1)
Quarter: 2018Q1

REPORT INFORMATION
  Report Type: Spontaneous
  Country: FR (occurrence: FR)
  Receive Date: 20180322
  Receipt Date: 20180322
  Transmission Date: 20180509
  Serious: Yes (Other)
  Sender: FDA-Public Use
  Company Number: FR-MERCK KGAA-2044297

PATIENT
  Age: 78 Year
  Sex: Female

DRUGS (6)
  1. PRADAXA [Concomitant]
     Active Substance: DABIGATRAN ETEXILATE MESYLATE
  2. TENORMIN [Concomitant]
     Active Substance: ATENOLOL
  3. EUTHYROX [Suspect]
     Active Substance: LEVOTHYROXINE SODIUM
     Dates: start: 2017, end: 201712
  4. COZAAR [Concomitant]
     Active Substance: LOSARTAN POTASSIUM
  5. FLECAINE [Concomitant]
     Active Substance: FLECAINIDE
  6. NOVOTHYROX [Suspect]
     Active Substance: LEVOTHYROXINE SODIUM
     Indication: POST PROCEDURAL HYPOTHYROIDISM
     Dates: start: 201710

REACTIONS (2)
  - Fatigue [None]
  - Cerebrovascular accident [None]

NARRATIVE: CASE EVENT DATE: 2017
